FAERS Safety Report 6240275-X (Version None)
Quarter: 2009Q2

REPORT INFORMATION
  Report Type: 
  Country: None (occurrence: None)
  Receive Date: 20090623
  Receipt Date: 20080710
  Transmission Date: 20091009
  Serious: No
  Sender: FDA-Public Use
  Company Number: US-ASTRAZENECA-2008UW10758

PATIENT
  Age: 62 Year
  Sex: Female
  Weight: 113.4 kg

DRUGS (8)
  1. PULMICORT FLEXHALER [Suspect]
     Dosage: 2 PUFFS BID
     Route: 055
     Dates: start: 20060101
  2. SPIRIVA [Concomitant]
  3. TOPROL-XL [Concomitant]
     Route: 048
  4. DIOVAN [Concomitant]
  5. ACIPHEX [Concomitant]
  6. CLONAZEPAM [Concomitant]
  7. VICODIN [Concomitant]
  8. XOPENEX [Concomitant]
     Dates: end: 20080601

REACTIONS (1)
  - MUSCLE SPASMS [None]
